FAERS Safety Report 10177033 (Version 1)
Quarter: 2014Q2

REPORT INFORMATION
  Report Type: Spontaneous
  Country: US (occurrence: None)
  Receive Date: 20140515
  Receipt Date: 20140515
  Transmission Date: 20141212
  Serious: Yes (Death)
  Sender: FDA-Public Use
  Company Number: None

PATIENT
  Age: 70 Year
  Sex: Male
  Weight: 82 kg

DRUGS (4)
  1. FRESENIUS DELFLEX DEXTROSE SOLUTION [Suspect]
     Indication: RENAL FAILURE CHRONIC
     Dosage: 12.5L OVERNIGHT CYCLING
     Dates: start: 20140108, end: 20140123
  2. FRESENIUS DELFLEX DEXTROSE SOLUTION [Suspect]
     Indication: RENAL FAILURE CHRONIC
     Dosage: 12.5L OVERNIGHT CYCLING
     Dates: start: 20140108, end: 20140123
  3. FRESENIUS LIBERTY CYCLER [Concomitant]
  4. FRESENIUS STAY SAFE CYCLER SETS [Concomitant]

REACTIONS (2)
  - Fungal peritonitis [None]
  - Candida infection [None]
